FAERS Safety Report 12663557 (Version 1)
Quarter: 2016Q3

REPORT INFORMATION
  Report Type: Spontaneous
  Country: US (occurrence: US)
  Receive Date: 20160818
  Receipt Date: 20160818
  Transmission Date: 20161109
  Serious: Yes (Death)
  Sender: FDA-Public Use
  Company Number: US-FRESENIUS KABI-FK201605527

PATIENT
  Age: 4 Month
  Sex: Female

DRUGS (2)
  1. DIBOTERMIN ALPHA [Suspect]
     Active Substance: DIBOTERMIN ALFA
     Indication: CRANIECTOMY
     Route: 065
  2. PROPOFOL (MANUFACTURER UNKNOWN) [Suspect]
     Active Substance: PROPOFOL
     Indication: GENERAL ANAESTHESIA
     Route: 042

REACTIONS (7)
  - Metabolic acidosis [Unknown]
  - Cardiomyopathy [Unknown]
  - Sepsis [Fatal]
  - Hepatic failure [Unknown]
  - Renal failure [Unknown]
  - Hepatomegaly [Unknown]
  - Multiple organ dysfunction syndrome [Fatal]
